APPROVED DRUG PRODUCT: OMNIPEN (AMPICILLIN)
Active Ingredient: AMPICILLIN/AMPICILLIN TRIHYDRATE
Strength: 500MG
Dosage Form/Route: CAPSULE;ORAL
Application: A060624 | Product #002
Applicant: WYETH AYERST LABORATORIES
Approved: Approved Prior to Jan 1, 1982 | RLD: No | RS: No | Type: DISCN